FAERS Safety Report 20016251 (Version 1)
Quarter: 2021Q4

REPORT INFORMATION
  Report Type: Spontaneous
  Country: US (occurrence: None)
  Receive Date: 20211103
  Receipt Date: 20211103
  Transmission Date: 20220303
  Serious: No
  Sender: FDA-Public Use
  Company Number: None

PATIENT
  Age: 76 Year
  Sex: Male

DRUGS (2)
  1. BAMLANIVIMAB [Suspect]
     Active Substance: BAMLANIVIMAB
     Indication: COVID-19
     Dosage: OTHER FREQUENCY : ONCE;?
     Route: 042
     Dates: start: 20211102, end: 20211102
  2. ETESEVIMAB [Suspect]
     Active Substance: ETESEVIMAB
     Indication: COVID-19
     Dosage: OTHER FREQUENCY : ONCE;?
     Route: 042
     Dates: start: 20211102, end: 20211102

REACTIONS (7)
  - Hypotension [None]
  - Disorientation [None]
  - Somnolence [None]
  - Dizziness [None]
  - Therapy interrupted [None]
  - Muscle rigidity [None]
  - Eye movement disorder [None]

NARRATIVE: CASE EVENT DATE: 20211103
